FAERS Safety Report 7825648-3 (Version None)
Quarter: 2011Q4

REPORT INFORMATION
  Report Type: 
  Country: None (occurrence: None)
  Receive Date: 20111019
  Receipt Date: 20111017
  Transmission Date: 20120403
  Serious: Yes (Other)
  Sender: FDA-Public Use
  Company Number: CHPA2011US14267

PATIENT
  Sex: Female

DRUGS (2)
  1. PREVACID 24 HR [Suspect]
     Indication: GASTROOESOPHAGEAL REFLUX DISEASE
     Dosage: 15 MG, EVERYDAY
     Route: 048
  2. ANASTROZOLE [Concomitant]
     Dosage: UNK
     Route: 048

REACTIONS (5)
  - DISEASE RECURRENCE [None]
  - OFF LABEL USE [None]
  - INCORRECT DRUG ADMINISTRATION DURATION [None]
  - MALIGNANT BREAST LUMP REMOVAL [None]
  - BREAST CANCER [None]
